FAERS Safety Report 7292289-9 (Version None)
Quarter: 2011Q1

REPORT INFORMATION
  Report Type: 
  Country: None (occurrence: None)
  Receive Date: 20110215
  Receipt Date: 20101229
  Transmission Date: 20110831
  Serious: Yes (Other)
  Sender: FDA-Public Use
  Company Number: US-BAYER-201014497NA

PATIENT
  Sex: Female
  Weight: 82 kg

DRUGS (48)
  1. HYDROXIZINE [Concomitant]
     Dosage: UNK
     Dates: start: 20090101
  2. UNCODEABLE ^UNCLASSIFIABLE^ [Concomitant]
     Dosage: UNK
     Dates: start: 20090101
  3. PRIMACARE [Concomitant]
     Dosage: UNK
     Dates: start: 20090101
  4. HYDROMORPHONE HCL [Concomitant]
     Dosage: UNK
     Dates: start: 20090101
  5. PHENAZOPYRIDINE HCL TAB [Concomitant]
     Dosage: UNK
     Dates: start: 20090101
  6. IBUPROFEN [Concomitant]
     Dosage: UNK
     Dates: start: 20091001
  7. WELCHOL [Concomitant]
     Indication: BLOOD CHOLESTEROL INCREASED
     Dosage: UNK
     Dates: start: 20090101
  8. SYMBYAX [Concomitant]
     Indication: DEPRESSION
  9. ELMIRON [Concomitant]
     Indication: CYSTITIS
     Dosage: UNK
     Dates: start: 20090101
  10. UNCODEABLE ^UNCLASSIFIABLE^ [Concomitant]
     Indication: ENDOMETRIOSIS
     Dosage: UNK
     Dates: start: 20090101
  11. LAMOTRIGINE [Concomitant]
     Dosage: UNK
     Dates: start: 20080101
  12. SERTRALINE HYDROCHLORIDE [Concomitant]
     Dosage: UNK
     Dates: start: 20090101
  13. AZITHROMYCIN [Concomitant]
     Dosage: UNK
     Dates: start: 20080101
  14. CEFUROXIME AXETIL [Concomitant]
     Dosage: UNK
     Dates: start: 20080101
  15. YAZ [Suspect]
     Indication: ORAL CONTRACEPTION
     Dosage: UNK UNK, UNK
     Route: 048
     Dates: start: 20080101, end: 20090113
  16. UNCODEABLE ^UNCLASSIFIABLE^ [Concomitant]
     Indication: HOT FLUSH
     Dosage: UNK
     Dates: start: 20090101
  17. SYMBYAX [Concomitant]
     Indication: ANXIETY
     Dosage: UNK
     Dates: start: 20090101
  18. CYMBALTA [Concomitant]
     Dosage: UNK
     Dates: start: 20080101
  19. UNCODEABLE ^UNCLASSIFIABLE^ [Concomitant]
     Indication: ABDOMINAL PAIN
     Dosage: UNK
     Dates: start: 20100101
  20. NEXIUM [Concomitant]
     Indication: DYSPEPSIA
     Dosage: UNK
     Dates: start: 20090101
  21. CLONAZEPAM [Concomitant]
     Indication: ANXIETY
     Dosage: UNK
     Dates: start: 20080101
  22. HYOSCYAMINE [Concomitant]
     Indication: CYSTITIS
     Dosage: UNK
     Dates: start: 20090101
  23. FOLIC ACID [Concomitant]
     Dosage: UNK
     Dates: start: 20090101
  24. MELOXICAM [Concomitant]
  25. GABAPENTIN [Concomitant]
     Indication: PAIN
     Dosage: UNK
     Dates: start: 20060101
  26. UNCODEABLE ^UNCLASSIFIABLE^ [Concomitant]
     Indication: ANXIETY
     Dosage: UNK
     Dates: start: 20090101
  27. UNCODEABLE ^UNCLASSIFIABLE^ [Concomitant]
     Indication: DEPRESSION
  28. METRONIDAZOLE [Concomitant]
     Dosage: UNK
     Dates: start: 20080101
  29. CODICLEAR DH [Concomitant]
     Dosage: UNK
     Dates: start: 20080101
  30. TAMIFLU [Concomitant]
     Dosage: UNK
     Dates: start: 20080101
  31. SULFAMETHOXAZOLE AND TRIMETHOPRIM [Concomitant]
     Dosage: UNK
     Dates: start: 20090101
  32. CLONAZEPAM [Concomitant]
     Indication: DEPRESSION
  33. FLUCONAZOLE [Concomitant]
     Dosage: UNK
     Dates: start: 20080101
  34. NAPROXEN [Concomitant]
     Dosage: UNK
     Dates: start: 20090101
  35. OXYCODONE HCL AND ACETAMINOPHEN [Concomitant]
     Dosage: UNK
     Dates: start: 20090101
  36. DOXYCYCLINE [Concomitant]
     Dosage: UNK
     Dates: start: 20090101
  37. UNCODEABLE ^UNCLASSIFIABLE^ [Concomitant]
     Dosage: UNK
     Dates: start: 20080101
  38. SUDAL [Concomitant]
     Dosage: UNK
     Dates: start: 20080101
  39. NASONEX [Concomitant]
     Dosage: UNK
     Dates: start: 20080101
  40. SALSALATE [Concomitant]
     Dosage: UNK
     Dates: start: 20090101
  41. YAZ [Suspect]
     Indication: ACNE
     Dosage: UNK
     Dates: start: 20090301, end: 20091101
  42. YAZ [Suspect]
     Indication: PREMENSTRUAL SYNDROME
  43. ALLEGRA-D [FEXOFENADINE HYDROCHLORIDE,PSEUDOEPHEDRINE HYDROCHLORIDE] [Concomitant]
     Indication: MULTIPLE ALLERGIES
     Dosage: UNK
     Dates: start: 20040101
  44. NORETHINDRONE ACETATE [Concomitant]
     Indication: ENDOMETRIOSIS
     Dosage: UNK
     Dates: start: 20090101
  45. AZITHROMYCIN [Concomitant]
     Dosage: UNK
     Dates: start: 20090101
  46. PREDNISONE TAB [Concomitant]
     Dosage: UNK
     Dates: start: 20080101
  47. DESOXIMETASONE [Concomitant]
     Dosage: UNK
     Dates: start: 20080101
  48. METHERGINE [Concomitant]
     Dosage: UNK
     Dates: start: 20090101

REACTIONS (14)
  - NAUSEA [None]
  - PREGNANCY ON ORAL CONTRACEPTIVE [None]
  - ABDOMINAL PAIN UPPER [None]
  - POST-TRAUMATIC STRESS DISORDER [None]
  - PROCEDURAL PAIN [None]
  - VOMITING [None]
  - DEPRESSION [None]
  - BILIARY DYSKINESIA [None]
  - SUICIDE ATTEMPT [None]
  - PROCEDURAL VOMITING [None]
  - SUICIDAL IDEATION [None]
  - CHOLECYSTITIS CHRONIC [None]
  - ANXIETY [None]
  - GASTRITIS [None]
